FAERS Safety Report 9567857 (Version 1)
Quarter: 2013Q3

REPORT INFORMATION
  Report Type: Spontaneous
  Country: US (occurrence: US)
  Receive Date: 20130930
  Receipt Date: 20130930
  Transmission Date: 20140515
  Serious: No
  Sender: FDA-Public Use
  Company Number: US-AMGEN-CANSP2013018087

PATIENT
  Age: 69 Year
  Sex: Male

DRUGS (5)
  1. ENBREL [Suspect]
     Indication: PSORIASIS
     Dosage: 50 MG, QWK
     Dates: start: 20120206
  2. METHOTREXATE [Concomitant]
     Dosage: UNK
  3. FOSAVANCE [Concomitant]
     Dosage: 70 MG, QWK
  4. FOLIC ACID [Concomitant]
     Dosage: 5MG X 6DAYS A WEEK , UNK
  5. PROSCAR [Concomitant]
     Dosage: UNK

REACTIONS (2)
  - Condition aggravated [Not Recovered/Not Resolved]
  - Injection site pain [Not Recovered/Not Resolved]
